FAERS Safety Report 10996773 (Version 1)
Quarter: 2015Q2

REPORT INFORMATION
  Report Type: Spontaneous
  Country: US (occurrence: None)
  Receive Date: 20150402
  Receipt Date: 20150402
  Transmission Date: 20150821
  Serious: Yes (Other)
  Sender: FDA-Public Use
  Company Number: 2014-US-007612

PATIENT
  Age: 55 Year
  Sex: Male

DRUGS (21)
  1. CITRATE OF MAGNESIUM (MAGNESIUM CITRATE) [Concomitant]
  2. SURFAK (DOCUSATE CALCIUM) [Concomitant]
  3. CLOZAPINE USP, ODT (CLOZAPINE, USP) TABLET, MG [Suspect]
     Active Substance: CLOZAPINE
     Indication: PSYCHOTIC DISORDER
     Dates: start: 20140303, end: 20140315
  4. BISACODYL. [Concomitant]
     Active Substance: BISACODYL
     Dates: start: 20140315, end: 20140411
  5. ALBUTEROL (SALBUTAMOL SULFATE) [Concomitant]
  6. FLUPHENAZINE HCL (FLUPHENAZINE HYDROCHLORIDE) [Concomitant]
  7. FLUTICASONE [Concomitant]
     Active Substance: FLUTICASONE\FLUTICASONE PROPIONATE
  8. RISPERIODONE [Concomitant]
     Active Substance: RISPERIDONE
  9. ACETAMINOPHEN (PARACETAMOL) [Concomitant]
     Active Substance: ACETAMINOPHEN
  10. BENZTROPINE MESILATE [Concomitant]
     Active Substance: BENZTROPINE MESYLATE
  11. OLANZAPINE. [Concomitant]
     Active Substance: OLANZAPINE
  12. ADVAIR DISKUS [Concomitant]
     Active Substance: FLUTICASONE PROPIONATE\SALMETEROL XINAFOATE
  13. ALBUTEROL HFA (SALBUTAMOL) [Concomitant]
  14. GLYCOPYRROLATE (GLYCOPYRRONIUM BROMIDE) [Concomitant]
  15. DOCUSATE CALCIUM. [Concomitant]
     Active Substance: DOCUSATE CALCIUM
  16. LACTULOSE. [Concomitant]
     Active Substance: LACTULOSE
  17. MELATONINE [Concomitant]
     Active Substance: MELATONIN
  18. MILK OF MAGNESIA (MAGNESIUM HYDROXIDE) [Concomitant]
  19. COMBIVENT (IPRATROPIUM BROMIDE, SALBUTAMOL SULFATE)? [Concomitant]
  20. LITHIUM CARBONATE. [Concomitant]
     Active Substance: LITHIUM CARBONATE
  21. ALUMINIUM-MAGNESIUM HYDROXIDE W/SIMETHICONA (ALUMINIUM HYDROXIDE, MAGNESIUM HYDROXIDE, SIMETICONE) ??? [Concomitant]

REACTIONS (1)
  - Ileus paralytic [None]

NARRATIVE: CASE EVENT DATE: 20140411
